FAERS Safety Report 9065179 (Version 1)
Quarter: 2013Q1

REPORT INFORMATION
  Report Type: Spontaneous
  Country: US (occurrence: US)
  Receive Date: 20130214
  Receipt Date: 20130214
  Transmission Date: 20140127
  Serious: No
  Sender: FDA-Public Use
  Company Number: US-PFIZER INC-2013055765

PATIENT
  Age: 29 Year
  Sex: Male
  Weight: 127 kg

DRUGS (2)
  1. VIAGRA [Suspect]
     Dosage: UNK
  2. VIAGRA [Suspect]
     Dosage: UNK, TOOK TWO TABLETS
     Route: 048
     Dates: start: 20130210

REACTIONS (2)
  - Erection increased [Not Recovered/Not Resolved]
  - Penile pain [Not Recovered/Not Resolved]
